FAERS Safety Report 4627908-6 (Version None)
Quarter: 2005Q2

REPORT INFORMATION
  Report Type: 
  Country: None (occurrence: None)
  Receive Date: 20050401
  Receipt Date: 20050316
  Transmission Date: 20051028
  Serious: Yes (Life-Threatening)
  Sender: FDA-Public Use
  Company Number: DSA_26064_2005

PATIENT
  Age: 70 Year
  Sex: Female
  Weight: 57 kg

DRUGS (9)
  1. RENIVACE [Suspect]
     Indication: HYPERTENSION
     Dosage: 2.5 MG BID PO
     Route: 048
     Dates: start: 20050108, end: 20050224
  2. PANALDINE [Suspect]
     Indication: MYOCARDIAL INFARCTION
     Dosage: 100 MG BID PO
     Route: 048
     Dates: start: 20050114, end: 20050224
  3. BEPRICOL [Suspect]
     Indication: ATRIAL FIBRILLATION
     Dosage: 50 MG BID PO
     Route: 048
     Dates: start: 20050215, end: 20050224
  4. AMARYL [Suspect]
     Indication: DIABETES MELLITUS
     Dosage: 1 MG Q DAY PO
     Route: 048
     Dates: start: 20050204, end: 20050224
  5. ASPIRIN [Concomitant]
  6. WARFARIN SODIUM [Concomitant]
  7. ARTIST [Concomitant]
  8. MUCOSTA [Concomitant]
  9. MAGNESIUM OXIDE [Concomitant]

REACTIONS (14)
  - AGRANULOCYTOSIS [None]
  - ALANINE AMINOTRANSFERASE ABNORMAL [None]
  - ASPARTATE AMINOTRANSFERASE ABNORMAL [None]
  - BLOOD ALKALINE PHOSPHATASE ABNORMAL [None]
  - BLOOD LACTATE DEHYDROGENASE ABNORMAL [None]
  - GAMMA-GLUTAMYLTRANSFERASE ABNORMAL [None]
  - HAEMATOCRIT ABNORMAL [None]
  - HAEMOGLOBIN ABNORMAL [None]
  - MONOCYTE COUNT ABNORMAL [None]
  - NEUTROPHIL PERCENTAGE INCREASED [None]
  - PLATELET COUNT ABNORMAL [None]
  - PROTHROMBIN TIME ABNORMAL [None]
  - RED BLOOD CELL COUNT ABNORMAL [None]
  - WHITE BLOOD CELL COUNT DECREASED [None]
